FAERS Safety Report 9496816 (Version 1)
Quarter: 2013Q3

REPORT INFORMATION
  Report Type: Spontaneous
  Country: FR (occurrence: None)
  Receive Date: 20130830
  Receipt Date: 20130830
  Transmission Date: 20140515
  Serious: Yes (Hospitalization)
  Sender: FDA-Public Use
  Company Number: 7233536

PATIENT
  Age: 97 Year
  Sex: Female

DRUGS (9)
  1. LEVOTHYROX [Suspect]
     Indication: PRODUCT USED FOR UNKNOWN INDICATION
     Route: 048
  2. PREVISCAN [Suspect]
     Indication: PRODUCT USED FOR UNKNOWN INDICATION
     Route: 048
     Dates: end: 201304
  3. CALCIPARINE [Suspect]
     Indication: PRODUCT USED FOR UNKNOWN INDICATION
     Dosage: 3 DF (1 DF, 3 IN 1 D), SUBCUTANEOUS
     Dates: start: 20130422, end: 20130426
  4. KARDEGIC [Suspect]
     Indication: PRODUCT USED FOR UNKNOWN INDICATION
     Route: 048
  5. AMIODARONE [Suspect]
     Indication: PRODUCT USED FOR UNKNOWN INDICATION
     Route: 048
  6. FUROSEMIDE [Concomitant]
  7. NITRIDERM (GLYCERYL TRINITRATE) [Concomitant]
  8. THERALENE (ALIMEMAZINE TARTRATE) [Concomitant]
  9. LACTULOSE [Concomitant]

REACTIONS (4)
  - International normalised ratio increased [None]
  - Pulmonary embolism [None]
  - Haematoma [None]
  - Renal failure acute [None]
